FAERS Safety Report 25944030 (Version 1)
Quarter: 2025Q4

REPORT INFORMATION
  Report Type: Spontaneous
  Country: US (occurrence: None)
  Receive Date: 20251021
  Receipt Date: 20251021
  Transmission Date: 20260117
  Serious: Yes (Life-Threatening, Other)
  Sender: ENDO
  Company Number: US-ENDO USA, INC.-2025-002127

PATIENT
  Sex: Male

DRUGS (4)
  1. VIGABATRIN [Suspect]
     Active Substance: VIGABATRIN
     Indication: Infantile spasms
     Dosage: 48 MG/KG/DAY, DIVIDED TWICE DAILY
     Route: 065
  2. VIGABATRIN [Suspect]
     Active Substance: VIGABATRIN
     Dosage: 48 MG/KG/DAY, TRANSITIONED TO 3 TIMES DAILY DOSING
     Route: 065
  3. VIGABATRIN [Suspect]
     Active Substance: VIGABATRIN
     Dosage: 108 MG/KG/DAY, DIVIDED INTO THRICE A DAY (SUBSEQUENTLY DOSE INCREASED)
     Route: 065
  4. PREDNISOLONE [Concomitant]
     Active Substance: PREDNISOLONE
     Indication: Infantile spasms
     Dosage: UNK UNKNOWN, UNKNOWN (HIGH DOSE)
     Route: 065

REACTIONS (8)
  - Cerebral disorder [Recovering/Resolving]
  - Hydrocephalus [Recovering/Resolving]
  - Depressed level of consciousness [Recovering/Resolving]
  - Tracheomalacia [Unknown]
  - Condition aggravated [Unknown]
  - Respiratory failure [Recovering/Resolving]
  - Somnolence [Recovering/Resolving]
  - Hypotonia [Recovering/Resolving]
